FAERS Safety Report 10083584 (Version 3)
Quarter: 2014Q2

REPORT INFORMATION
  Report Type: Spontaneous
  Country: CH (occurrence: None)
  Receive Date: 20140415
  Receipt Date: 20140610
  Transmission Date: 20141212
  Serious: Yes (Other)
  Sender: FDA-Public Use
  Company Number: 20140197

PATIENT
  Age: 30 Year
  Sex: Female
  Weight: 60 kg

DRUGS (1)
  1. VENOFER [Suspect]
     Indication: ANAEMIA
     Dosage: 100 MG, 1 IN 1 TOTAL, INTRAVENOUS BOLUS?
     Route: 040
     Dates: start: 20140115, end: 20140115

REACTIONS (4)
  - Exposure during pregnancy [None]
  - Foetal death [None]
  - Premature rupture of membranes [None]
  - Premature delivery [None]
